FAERS Safety Report 21211224 (Version 1)
Quarter: 2022Q3

REPORT INFORMATION
  Report Type: Spontaneous
  Country: US (occurrence: None)
  Receive Date: 20220812
  Receipt Date: 20220812
  Transmission Date: 20221026
  Serious: No
  Sender: FDA-Public Use
  Company Number: None

PATIENT
  Sex: Male

DRUGS (2)
  1. EPCLUSA [Suspect]
     Active Substance: SOFOSBUVIR\VELPATASVIR
     Indication: Chronic hepatitis C
     Dosage: FREQUENCY : DAILY;?
     Route: 048
     Dates: start: 202207
  2. RIBAVIRIN [Suspect]
     Active Substance: RIBAVIRIN
     Indication: Chronic hepatitis C
     Dosage: FREQUENCY : DAILY;?
     Route: 048
     Dates: start: 202207

REACTIONS (3)
  - Joint swelling [None]
  - Fatigue [None]
  - Dizziness [None]
